FAERS Safety Report 8335132-9 (Version None)
Quarter: 2012Q2

REPORT INFORMATION
  Report Type: 
  Country: None (occurrence: None)
  Receive Date: 20120503
  Receipt Date: 20120424
  Transmission Date: 20120825
  Serious: Yes (Other)
  Sender: FDA-Public Use
  Company Number: US-CELGENEUS-163-21880-12031964

PATIENT
  Sex: Female
  Weight: 52.664 kg

DRUGS (17)
  1. ASTELIN [Concomitant]
     Dosage: 137 MICROGRAM
     Route: 045
  2. CLONIDINE [Concomitant]
     Dosage: .1 MILLIGRAM
     Route: 065
  3. XALATAN [Concomitant]
     Dosage: .005 PERCENT
     Route: 065
  4. REVLIMID [Suspect]
     Indication: MULTIPLE MYELOMA
     Dosage: 10 MILLIGRAM
     Route: 048
     Dates: start: 20100601
  5. ASPIRIN [Concomitant]
     Dosage: 81 MILLIGRAM
     Route: 065
  6. ISTALOL [Concomitant]
     Dosage: .5 PERCENT
     Route: 065
  7. RESTASIS [Concomitant]
     Dosage: .05 PERCENT
     Route: 065
  8. ASPIRIN [Concomitant]
     Dosage: 325 MILLIGRAM
     Route: 065
  9. VITAMIN B6 [Concomitant]
     Dosage: 50 MILLIGRAM
     Route: 065
  10. AMLODIPINE BESYLATE AND BENAZEPRIL HCL [Concomitant]
     Dosage: 2.5-10MG
     Route: 065
  11. DEXAMETHASONE [Concomitant]
     Route: 065
  12. NORVASC [Concomitant]
     Dosage: 10 MILLIGRAM
     Route: 065
  13. LISINOPRIL [Concomitant]
     Dosage: 40 MILLIGRAM
     Route: 065
  14. REVLIMID [Suspect]
     Dosage: 10 MILLIGRAM
     Route: 048
     Dates: start: 20100715
  15. ERYTHROMYCIN [Concomitant]
     Dosage: 5MG/GRAM (0.5%)
     Route: 065
  16. KLOR-CON M20 [Concomitant]
     Route: 065
  17. PATANOL [Concomitant]
     Dosage: .1 PERCENT
     Route: 065

REACTIONS (1)
  - CATARACT [None]
